FAERS Safety Report 25412267 (Version 1)
Quarter: 2025Q2

REPORT INFORMATION
  Report Type: Spontaneous
  Country: PL (occurrence: PL)
  Receive Date: 20250609
  Receipt Date: 20250609
  Transmission Date: 20250716
  Serious: Yes (Other)
  Sender: MSN LABORATORIES PRIVATE LIMITED
  Company Number: PL-RECORDATI-2025003236

PATIENT

DRUGS (22)
  1. ROSUVASTATIN [Suspect]
     Active Substance: ROSUVASTATIN
     Indication: Vertebrobasilar stroke
     Route: 065
  2. ROSUVASTATIN [Suspect]
     Active Substance: ROSUVASTATIN
     Indication: Cardiac failure
  3. ROSUVASTATIN [Suspect]
     Active Substance: ROSUVASTATIN
     Indication: Sleep disorder
  4. DAPAGLIFLOZIN [Suspect]
     Active Substance: DAPAGLIFLOZIN
     Indication: Vertebrobasilar stroke
     Route: 065
  5. DAPAGLIFLOZIN [Suspect]
     Active Substance: DAPAGLIFLOZIN
     Indication: Cardiac failure
  6. DAPAGLIFLOZIN [Suspect]
     Active Substance: DAPAGLIFLOZIN
     Indication: Sleep disorder
  7. RAMIPRIL [Suspect]
     Active Substance: RAMIPRIL
     Indication: Vertebrobasilar stroke
     Route: 065
  8. RAMIPRIL [Suspect]
     Active Substance: RAMIPRIL
     Indication: Cardiac failure
  9. RAMIPRIL [Suspect]
     Active Substance: RAMIPRIL
     Indication: Sleep disorder
  10. ASPIRIN [Suspect]
     Active Substance: ASPIRIN
     Indication: Vertebrobasilar stroke
     Route: 065
  11. ASPIRIN [Suspect]
     Active Substance: ASPIRIN
     Indication: Cardiac failure
  12. ASPIRIN [Suspect]
     Active Substance: ASPIRIN
     Indication: Sleep disorder
  13. TORSEMIDE [Suspect]
     Active Substance: TORSEMIDE
     Indication: Vertebrobasilar stroke
     Route: 065
  14. TORSEMIDE [Suspect]
     Active Substance: TORSEMIDE
     Indication: Cardiac failure
  15. TORSEMIDE [Suspect]
     Active Substance: TORSEMIDE
     Indication: Sleep disorder
  16. METOPROLOL [Suspect]
     Active Substance: METOPROLOL
     Indication: Vertebrobasilar stroke
     Route: 065
  17. METOPROLOL [Suspect]
     Active Substance: METOPROLOL
     Indication: Cardiac failure
  18. METOPROLOL [Suspect]
     Active Substance: METOPROLOL
     Indication: Sleep disorder
  19. PANTOPRAZOLE [Suspect]
     Active Substance: PANTOPRAZOLE
     Indication: Vertebrobasilar stroke
     Route: 065
  20. PANTOPRAZOLE [Suspect]
     Active Substance: PANTOPRAZOLE
     Indication: Cardiac failure
  21. PANTOPRAZOLE [Suspect]
     Active Substance: PANTOPRAZOLE
     Indication: Sleep disorder
  22. ESTAZOLAM [Concomitant]
     Active Substance: ESTAZOLAM
     Indication: Insomnia
     Dosage: 4 MG FOR THE NIGHT
     Route: 065

REACTIONS (2)
  - Disease risk factor [Unknown]
  - Drug-disease interaction [Unknown]
